FAERS Safety Report 6865461-7 (Version None)
Quarter: 2010Q3

REPORT INFORMATION
  Report Type: 
  Country: None (occurrence: None)
  Receive Date: 20100721
  Receipt Date: 20080829
  Transmission Date: 20110219
  Serious: No
  Sender: FDA-Public Use
  Company Number: US-PFIZER INC-2008035399

PATIENT
  Sex: Male
  Weight: 95.3 kg

DRUGS (7)
  1. CHANTIX [Suspect]
     Indication: SMOKING CESSATION THERAPY
     Dates: start: 20080301
  2. TEGRETOL [Concomitant]
  3. PROCARDIA [Concomitant]
  4. LISINOPRIL [Concomitant]
  5. LIPITOR [Concomitant]
  6. GLUCOPHAGE [Concomitant]
  7. VITAMINS [Concomitant]

REACTIONS (4)
  - ENERGY INCREASED [None]
  - LIMB INJURY [None]
  - NERVOUSNESS [None]
  - RESPIRATORY RATE DECREASED [None]
